FAERS Safety Report 8621653 (Version 3)
Quarter: 2013Q1

REPORT INFORMATION
  Report Type: Spontaneous
  Country: FR (occurrence: None)
  Receive Date: 20120531
  Receipt Date: 20121207
  Transmission Date: 20140127
  Serious: Yes (Other)
  Sender: FDA-Public Use
  Company Number: ENTC2012-0224

PATIENT
  Age: 64 Year
  Sex: Male

DRUGS (5)
  1. CARBIDOPA\ENTACAPONE\LEVODOPA [Suspect]
     Indication: PARKINSON^S DISEASE
     Route: 048
     Dates: start: 200906
  2. MODOPAR [Concomitant]
  3. TRIVASTAL [Concomitant]
  4. ARTOTEC [Concomitant]
  5. MYOLASTAN [Concomitant]

REACTIONS (8)
  - Cholelithiasis [None]
  - Cholestasis [None]
  - Gamma-glutamyltransferase increased [None]
  - Cholangiocarcinoma [None]
  - Pancreatitis [None]
  - Orchitis [None]
  - Benign prostatic hyperplasia [None]
  - Prostatic disorder [None]
